APPROVED DRUG PRODUCT: FENOFIBRATE
Active Ingredient: FENOFIBRATE
Strength: 54MG
Dosage Form/Route: TABLET;ORAL
Application: A076520 | Product #001
Applicant: MYLAN PHARMACEUTICALS INC
Approved: Oct 25, 2007 | RLD: No | RS: No | Type: DISCN